FAERS Safety Report 6368377-8 (Version None)
Quarter: 2009Q3

REPORT INFORMATION
  Report Type: 
  Country: None (occurrence: None)
  Receive Date: 20090922
  Receipt Date: 20090911
  Transmission Date: 20100115
  Serious: Yes (Hospitalization)
  Sender: FDA-Public Use
  Company Number: IE-JNJFOC-20090706982

PATIENT
  Age: 28 Year
  Sex: Female

DRUGS (4)
  1. REMICADE [Suspect]
     Route: 042
  2. REMICADE [Suspect]
     Dosage: SECOND DOSE AT 2 WEEKS
     Route: 042
  3. REMICADE [Suspect]
     Indication: COLITIS ULCERATIVE
     Dosage: FIRST DOSE AT 0 WEEKS
     Route: 042
  4. ASACOLON [Concomitant]

REACTIONS (12)
  - ARTHRALGIA [None]
  - DIZZINESS [None]
  - FACIAL BONES FRACTURE [None]
  - FALL [None]
  - FATIGUE [None]
  - GROIN PAIN [None]
  - HYPERHIDROSIS [None]
  - JOINT INJURY [None]
  - JOINT STIFFNESS [None]
  - NEUROPATHY PERIPHERAL [None]
  - RASH [None]
  - SYNCOPE [None]
